FAERS Safety Report 6211852-7 (Version None)
Quarter: 2009Q2

REPORT INFORMATION
  Report Type: 
  Country: None (occurrence: None)
  Receive Date: 20090602
  Receipt Date: 20090521
  Transmission Date: 20091009
  Serious: Yes (Hospitalization, Other)
  Sender: FDA-Public Use
  Company Number: HU-PFIZER INC-2009219808

PATIENT

DRUGS (1)
  1. ALPRAZOLAM [Suspect]

REACTIONS (1)
  - ERYTHEMA MULTIFORME [None]
